FAERS Safety Report 17237202 (Version 1)
Quarter: 2020Q1

REPORT INFORMATION
  Report Type: Spontaneous
  Country: GR (occurrence: GR)
  Receive Date: 20200106
  Receipt Date: 20200106
  Transmission Date: 20200409
  Serious: Yes (Death, Hospitalization)
  Sender: FDA-Public Use
  Company Number: GR-MYLANLABS-2020M1001649

PATIENT
  Age: 87 Year
  Sex: Female

DRUGS (5)
  1. HYDROCORTISONE. [Suspect]
     Active Substance: HYDROCORTISONE
     Indication: PARKINSONIAN CRISIS
     Dosage: CONTINUOUS
     Route: 042
  2. APOMORPHINE [Suspect]
     Active Substance: APOMORPHINE
     Indication: PARKINSONIAN CRISIS
     Dosage: INTERMITTENT
     Route: 058
  3. CO-BENELDOPA [Suspect]
     Active Substance: BENSERAZIDE HYDROCHLORIDE\LEVODOPA
     Indication: PARKINSONIAN CRISIS
     Dosage: ORALLY DISINTEGRATING TABLETS
     Route: 065
  4. ENTACAPONE. [Suspect]
     Active Substance: ENTACAPONE
     Indication: PARKINSONIAN CRISIS
     Dosage: ORALLY DISINTEGRATING TABLETS
     Route: 065
  5. LEVODOPA/CARBIDOPA/ENTACAPONE [Concomitant]
     Active Substance: CARBIDOPA\ENTACAPONE\LEVODOPA
     Indication: PARKINSON^S DISEASE
     Dosage: ORALLY DISINTEGRATING TABLETS
     Route: 048

REACTIONS (1)
  - Drug ineffective [Fatal]
